FAERS Safety Report 7433910-1 (Version None)
Quarter: 2011Q2

REPORT INFORMATION
  Report Type: 
  Country: None (occurrence: None)
  Receive Date: 20110418
  Receipt Date: 20110405
  Transmission Date: 20111010
  Serious: Yes (Hospitalization, Other)
  Sender: FDA-Public Use
  Company Number: BR-001645

PATIENT

DRUGS (1)
  1. NAGLAZYME [Suspect]
     Indication: MUCOPOLYSACCHARIDOSIS VI
     Dosage: 20 MG 1X/WEEK, INTRAVENOUS DRIP
     Route: 041
     Dates: start: 20060601, end: 20110101

REACTIONS (2)
  - THROMBOCYTOPENIA [None]
  - DENGUE FEVER [None]
